FAERS Safety Report 8711060 (Version 2)
Quarter: 2012Q4

REPORT INFORMATION
  Report Type: Report from Study
  Country: DE (occurrence: DE)
  Receive Date: 20120807
  Receipt Date: 20120923
  Transmission Date: 20130627
  Serious: Yes (Other)
  Sender: FDA-Public Use
  Company Number: DE-US-EMD SERONO, INC.-7152346

PATIENT
  Age: 37 None
  Sex: Female

DRUGS (2)
  1. REBIF [Suspect]
     Indication: MULTIPLE SCLEROSIS
     Route: 058
     Dates: start: 2008
  2. CODIOVAN [Concomitant]
     Indication: HYPERTONIA
     Dosage: 80 mg/12.5 mg

REACTIONS (1)
  - Infection susceptibility increased [Recovering/Resolving]
